FAERS Safety Report 13479204 (Version 1)
Quarter: 2017Q2

REPORT INFORMATION
  Report Type: Spontaneous
  Country: US (occurrence: US)
  Receive Date: 20170425
  Receipt Date: 20170425
  Transmission Date: 20170830
  Serious: Yes (Other)
  Sender: FDA-Public Use
  Company Number: None

PATIENT
  Age: 43 Year
  Sex: Female
  Weight: 11.35 kg

DRUGS (1)
  1. ARIPIPRAZOLE 2MG [Suspect]
     Active Substance: ARIPIPRAZOLE
     Indication: MAJOR DEPRESSION
     Route: 048
     Dates: start: 20170316, end: 20170328

REACTIONS (4)
  - Cognitive disorder [None]
  - Impaired driving ability [None]
  - Road traffic accident [None]
  - Feeling abnormal [None]

NARRATIVE: CASE EVENT DATE: 20170405
